FAERS Safety Report 19619169 (Version 2)
Quarter: 2022Q2

REPORT INFORMATION
  Report Type: Spontaneous
  Country: US (occurrence: None)
  Receive Date: 20210727
  Receipt Date: 20220621
  Transmission Date: 20220721
  Serious: Yes (Hospitalization)
  Sender: FDA-Public Use
  Company Number: US-ROCHE-2769162

PATIENT
  Sex: Female

DRUGS (2)
  1. CAPECITABINE [Suspect]
     Active Substance: CAPECITABINE
     Indication: Product used for unknown indication
     Route: 048
  2. TUKYSA [Suspect]
     Active Substance: TUCATINIB
     Indication: Breast cancer female
     Route: 065

REACTIONS (14)
  - Infection [Unknown]
  - Dry skin [Unknown]
  - Liver disorder [Unknown]
  - Haemoglobin decreased [Unknown]
  - Platelet count increased [Unknown]
  - Mean platelet volume decreased [Unknown]
  - Diarrhoea [Unknown]
  - Cushingoid [Unknown]
  - Fatigue [Unknown]
  - Weight decreased [Unknown]
  - Neoplasm progression [Unknown]
  - Gastric infection [Unknown]
  - Dizziness [Unknown]
  - Tremor [Unknown]
